FAERS Safety Report 23774303 (Version 1)
Quarter: 2024Q2

REPORT INFORMATION
  Report Type: Spontaneous
  Country: US (occurrence: None)
  Receive Date: 20240423
  Receipt Date: 20240423
  Transmission Date: 20240716
  Serious: No
  Sender: FDA-Public Use
  Company Number: None

PATIENT
  Age: 94 Year
  Sex: Male
  Weight: 81 kg

DRUGS (5)
  1. APIXABAN [Suspect]
     Active Substance: APIXABAN
     Indication: Haematuria
  2. APIXABAN [Suspect]
     Active Substance: APIXABAN
     Indication: Pulmonary embolism
  3. APIXABAN [Suspect]
     Active Substance: APIXABAN
     Indication: Atrial fibrillation
  4. APIXABAN [Suspect]
     Active Substance: APIXABAN
     Indication: Mitral valve incompetence
  5. APIXABAN [Suspect]
     Active Substance: APIXABAN
     Indication: Portal vein thrombosis

REACTIONS (2)
  - Haematuria [None]
  - Pulmonary embolism [None]

NARRATIVE: CASE EVENT DATE: 20230614
